FAERS Safety Report 22766503 (Version 4)
Quarter: 2024Q4

REPORT INFORMATION
  Report Type: Report from Study
  Country: US (occurrence: US)
  Receive Date: 20230731
  Receipt Date: 20241108
  Transmission Date: 20250114
  Serious: Yes (Death, Hospitalization, Other)
  Sender: JAZZ
  Company Number: US-JAZZ PHARMACEUTICALS-2023-US-002428

PATIENT
  Age: 46 Year
  Sex: Female

DRUGS (3)
  1. XYWAV [Suspect]
     Active Substance: CALCIUM OXYBATE\MAGNESIUM OXYBATE\POTASSIUM OXYBATE\SODIUM OXYBATE
     Indication: Narcolepsy
     Dosage: 4.5 GRAM, BID
     Route: 048
     Dates: start: 20201124, end: 20230907
  2. XYWAV [Suspect]
     Active Substance: CALCIUM OXYBATE\MAGNESIUM OXYBATE\POTASSIUM OXYBATE\SODIUM OXYBATE
     Indication: Cataplexy
  3. SERTRALINE HYDROCHLORIDE [Concomitant]
     Active Substance: SERTRALINE HYDROCHLORIDE
     Indication: Product used for unknown indication
     Dosage: UNK
     Dates: start: 20070708

REACTIONS (15)
  - Death [Fatal]
  - Injury [Recovered/Resolved]
  - Fall [Recovered/Resolved with Sequelae]
  - Drug abuse [Unknown]
  - Head injury [Unknown]
  - Seizure [Unknown]
  - Fall [Unknown]
  - Fall [Unknown]
  - Tooth fracture [Unknown]
  - Fall [Recovered/Resolved with Sequelae]
  - Tooth loss [Unknown]
  - Tongue injury [Unknown]
  - Hypersensitivity [Unknown]
  - Skin laceration [Unknown]
  - Wrong technique in product usage process [Unknown]

NARRATIVE: CASE EVENT DATE: 20230205
